FAERS Safety Report 7306650-7 (Version None)
Quarter: 2011Q1

REPORT INFORMATION
  Report Type: 
  Country: None (occurrence: None)
  Receive Date: 20110209
  Receipt Date: 20110125
  Transmission Date: 20110831
  Serious: Yes (Other)
  Sender: FDA-Public Use
  Company Number: CTI_01262_2010

PATIENT
  Age: 17 Year
  Sex: Female

DRUGS (1)
  1. GIASION - CEFDITOREN [Suspect]
     Indication: EAR INFECTION
     Dosage: (DF)
     Dates: start: 20100530, end: 20100605

REACTIONS (4)
  - DECREASED APPETITE [None]
  - AMENORRHOEA [None]
  - THYROXINE DECREASED [None]
  - WEIGHT DECREASED [None]
